FAERS Safety Report 10437958 (Version 2)
Quarter: 2014Q3

REPORT INFORMATION
  Report Type: Report from Study
  Country: US (occurrence: US)
  Receive Date: 20140908
  Receipt Date: 20140908
  Transmission Date: 20150326
  Serious: Yes (Hospitalization)
  Sender: FDA-Public Use
  Company Number: US-SA-2014SA094027

PATIENT
  Age: 38 Year
  Sex: Female

DRUGS (2)
  1. FLEXERIL [Suspect]
     Active Substance: CYCLOBENZAPRINE HYDROCHLORIDE
     Route: 065
  2. AUBAGIO [Suspect]
     Active Substance: TERIFLUNOMIDE
     Indication: MULTIPLE SCLEROSIS
     Route: 048
     Dates: start: 20140510

REACTIONS (2)
  - Alopecia [Not Recovered/Not Resolved]
  - Suicide attempt [Unknown]

NARRATIVE: CASE EVENT DATE: 201407
